FAERS Safety Report 6074836-8 (Version None)
Quarter: 2009Q1

REPORT INFORMATION
  Report Type: 
  Country: None (occurrence: None)
  Receive Date: 20090212
  Receipt Date: 20090130
  Transmission Date: 20090719
  Serious: Yes (Other)
  Sender: FDA-Public Use
  Company Number: PHHY2009AU03872

PATIENT
  Sex: Female

DRUGS (2)
  1. ACLASTA [Suspect]
     Dosage: 1 INFUSION
  2. ZOMETA [Interacting]
     Indication: OSTEOPOROSIS
     Dosage: 1 INFUSION LAST YEAR

REACTIONS (1)
  - HAIR METAL TEST ABNORMAL [None]
